FAERS Safety Report 6699043-7 (Version None)
Quarter: 2010Q2

REPORT INFORMATION
  Report Type: 
  Country: None (occurrence: None)
  Receive Date: 20100427
  Receipt Date: 20100409
  Transmission Date: 20101027
  Serious: No
  Sender: FDA-Public Use
  Company Number: US-B.I. PHARMACEUTICALS,INC./RIDGEFIELD-2010-BP-03479BP

PATIENT
  Age: 79 Year
  Sex: Female

DRUGS (6)
  1. SPIRIVA [Suspect]
     Indication: CHRONIC OBSTRUCTIVE PULMONARY DISEASE
     Dosage: 18 MCG
     Route: 055
     Dates: start: 20050101
  2. METHIMAZOLE [Concomitant]
     Indication: HYPERTHYROIDISM
     Dosage: 10 MG
  3. PRAVASTATIN [Concomitant]
     Indication: BLOOD CHOLESTEROL INCREASED
  4. SINGULAIR [Concomitant]
     Indication: HYPERSENSITIVITY
     Dosage: 10 MG
  5. PRAVACHOL [Concomitant]
     Dosage: 10 MG
  6. BAYER [Concomitant]
     Dosage: 81 MG

REACTIONS (1)
  - DYSPNOEA [None]
